FAERS Safety Report 4530572-8 (Version None)
Quarter: 2004Q4

REPORT INFORMATION
  Report Type: 
  Country: None (occurrence: None)
  Receive Date: 20041216
  Receipt Date: 20041202
  Transmission Date: 20050328
  Serious: Yes (Hospitalization, Other)
  Sender: FDA-Public Use
  Company Number: SGB1-2004-00427

PATIENT
  Age: 81 Year
  Sex: Male
  Weight: 72 kg

DRUGS (13)
  1. XAGRID (NAGRELIDE HYDROCHLORIDE)CAPSULE [Suspect]
     Indication: ESSENTIAL THROMBOCYTHAEMIA
     Dosage: SEE IMAGE
     Dates: start: 20030303, end: 20030701
  2. XAGRID (NAGRELIDE HYDROCHLORIDE)CAPSULE [Suspect]
     Indication: ESSENTIAL THROMBOCYTHAEMIA
     Dosage: SEE IMAGE
     Dates: start: 20031201, end: 20040205
  3. XAGRID (NAGRELIDE HYDROCHLORIDE)CAPSULE [Suspect]
     Indication: ESSENTIAL THROMBOCYTHAEMIA
     Dosage: SEE IMAGE
     Dates: start: 20030806
  4. XAGRID (NAGRELIDE HYDROCHLORIDE)CAPSULE [Suspect]
     Indication: ESSENTIAL THROMBOCYTHAEMIA
     Dosage: SEE IMAGE
     Dates: start: 20031006
  5. XAGRID (NAGRELIDE HYDROCHLORIDE)CAPSULE [Suspect]
     Indication: ESSENTIAL THROMBOCYTHAEMIA
     Dosage: SEE IMAGE
     Dates: start: 20031204
  6. XAGRID (NAGRELIDE HYDROCHLORIDE)CAPSULE [Suspect]
     Indication: ESSENTIAL THROMBOCYTHAEMIA
     Dosage: SEE IMAGE
     Dates: start: 20040213
  7. XAGRID (NAGRELIDE HYDROCHLORIDE)CAPSULE [Suspect]
     Indication: ESSENTIAL THROMBOCYTHAEMIA
     Dosage: SEE IMAGE
     Dates: start: 20040524
  8. CELECTOL [Concomitant]
  9. COAPROVEL (HYDROCHLOROTHIAZIDE, IRBESARTAN) [Concomitant]
  10. APROVEL (IRBESARTAN) [Concomitant]
  11. PROCTOLOG (TRIMEBUTINE, RUSCOGENIN) [Concomitant]
  12. DOLIPRANE [Concomitant]
  13. HEXAQUINE (THIAMINE HYDROCHLORIDE, QUININE BENZOATE, MELALEUCA VIRIDIF [Concomitant]

REACTIONS (13)
  - ANGINA PECTORIS [None]
  - CORONARY ARTERY INSUFFICIENCY [None]
  - CORONARY ARTERY RESTENOSIS [None]
  - CORONARY ARTERY STENOSIS [None]
  - DRUG INEFFECTIVE [None]
  - DRY EYE [None]
  - LOOSE STOOLS [None]
  - MUSCLE CRAMP [None]
  - MYOCARDIAL ISCHAEMIA [None]
  - PLATELET COUNT ABNORMAL [None]
  - PLATELET FUNCTION TEST ABNORMAL [None]
  - POST PROCEDURAL HAEMATOMA [None]
  - STENT OCCLUSION [None]
